FAERS Safety Report 23938471 (Version 1)
Quarter: 2024Q2

REPORT INFORMATION
  Report Type: Spontaneous
  Country: US (occurrence: None)
  Receive Date: 20240604
  Receipt Date: 20240604
  Transmission Date: 20240716
  Serious: Yes (Hospitalization, Other)
  Sender: FDA-Public Use
  Company Number: None

PATIENT
  Age: 56 Year
  Sex: Female
  Weight: 67.5 kg

DRUGS (1)
  1. TOPIRAMATE [Suspect]
     Active Substance: TOPIRAMATE
     Indication: Headache
     Dosage: OTHER QUANTITY : 1 TABLET(S);?FREQUENCY : AT BEDTIME;?
     Route: 048
     Dates: start: 20240512, end: 20240526

REACTIONS (9)
  - Visual impairment [None]
  - Eye pain [None]
  - Pyrexia [None]
  - Impaired driving ability [None]
  - Impaired work ability [None]
  - Disturbance in attention [None]
  - Accident [None]
  - Dizziness [None]
  - Dysphemia [None]

NARRATIVE: CASE EVENT DATE: 20240526
